FAERS Safety Report 9768311 (Version 1)
Quarter: 2013Q4

REPORT INFORMATION
  Report Type: Spontaneous
  Country: US (occurrence: US)
  Receive Date: 20131217
  Receipt Date: 20131217
  Transmission Date: 20140711
  Serious: Yes (Other)
  Sender: FDA-Public Use
  Company Number: US-BAYER-2013-151501

PATIENT
  Age: 54 Year
  Sex: Male

DRUGS (3)
  1. ALKA-SELTZER PLUS SPARKLING ORIGINAL COLD FORMULA [Suspect]
  2. GAVISCON [ALUMINIUM HYDROXIDE,MAGNESIUM CARBONATE,SODIUM ALGINATE] [Suspect]
     Dosage: UNK
     Dates: start: 201311
  3. PRAVASTATIN [Suspect]
     Dosage: UNK

REACTIONS (4)
  - Oral candidiasis [None]
  - Tongue eruption [None]
  - Tongue disorder [None]
  - Tongue discolouration [None]
